FAERS Safety Report 16145332 (Version 1)
Quarter: 2019Q2

REPORT INFORMATION
  Report Type: Spontaneous
  Country: FR (occurrence: FR)
  Receive Date: 20190402
  Receipt Date: 20190402
  Transmission Date: 20190711
  Serious: Yes (Life-Threatening)
  Sender: FDA-Public Use
  Company Number: FR-SUN PHARMACEUTICAL INDUSTRIES LTD-2019RR-203678

PATIENT
  Sex: Female

DRUGS (1)
  1. PARACETAMOL [Suspect]
     Active Substance: ACETAMINOPHEN
     Indication: INTENTIONAL PRODUCT USE ISSUE
     Dosage: ()
     Route: 048
     Dates: start: 20190119, end: 20190120

REACTIONS (2)
  - Diabetic metabolic decompensation [Unknown]
  - Vomiting [Unknown]

NARRATIVE: CASE EVENT DATE: 20190120
